FAERS Safety Report 7105652-3 (Version None)
Quarter: 2010Q4

REPORT INFORMATION
  Report Type: 
  Country: None (occurrence: None)
  Receive Date: 20101110
  Receipt Date: 20101102
  Transmission Date: 20110411
  Serious: Yes (Other)
  Sender: FDA-Public Use
  Company Number: 021487

PATIENT
  Sex: Male
  Weight: 67 kg

DRUGS (2)
  1. KEPPRA [Suspect]
     Indication: EPILEPSY
     Dosage: (750 MG BID ORAL), (1750 MG, 1000 + 750 MG ORAL)
     Route: 048
     Dates: end: 20100401
  2. KEPPRA [Suspect]
     Indication: EPILEPSY
     Dosage: (750 MG BID ORAL), (1750 MG, 1000 + 750 MG ORAL)
     Route: 048
     Dates: start: 20080401

REACTIONS (4)
  - DEPRESSION [None]
  - MENTAL STATUS CHANGES [None]
  - SOCIAL AVOIDANT BEHAVIOUR [None]
  - SUICIDAL IDEATION [None]
